FAERS Safety Report 24682107 (Version 5)
Quarter: 2025Q4

REPORT INFORMATION
  Report Type: Spontaneous
  Country: EU (occurrence: EU)
  Receive Date: 20241130
  Receipt Date: 20251120
  Transmission Date: 20260117
  Serious: Yes (Hospitalization, Other)
  Sender: ALEXION PHARMACEUTICALS
  Company Number: EU-SA-2024SA327315

PATIENT
  Age: 66 Year
  Sex: Female
  Weight: 80 kg

DRUGS (234)
  1. FASLODEX [Suspect]
     Active Substance: FULVESTRANT
     Indication: Breast cancer metastatic
     Dosage: 500 MG, QM
     Dates: start: 20171116, end: 20191001
  2. FASLODEX [Suspect]
     Active Substance: FULVESTRANT
     Dosage: 1000 MILLIGRAM, QW
     Dates: start: 20171002
  3. FASLODEX [Suspect]
     Active Substance: FULVESTRANT
     Dosage: MOST RECENT DOSE PRIOR TO THE EVENT LYMPH NODE METASTATIS AXILLA AND PORT A CATH INFECTION: 16/NOV/2017
     Dates: start: 20171002, end: 20171115
  4. ENHERTU [Suspect]
     Active Substance: FAM-TRASTUZUMAB DERUXTECAN-NXKI
     Dosage: UNK
     Dates: start: 20200814, end: 20201015
  5. CAPECITABINE [Suspect]
     Active Substance: CAPECITABINE
     Indication: Breast cancer metastatic
     Dosage: 2000 MG, QD
  6. CAPECITABINE [Suspect]
     Active Substance: CAPECITABINE
     Dosage: 3000 MG, QD
  7. CAPECITABINE [Suspect]
     Active Substance: CAPECITABINE
     Dosage: 3000 MG, QD
     Route: 065
  8. CAPECITABINE [Suspect]
     Active Substance: CAPECITABINE
     Dosage: 3500 MG, QD
  9. CAPECITABINE [Suspect]
     Active Substance: CAPECITABINE
     Dosage: 300 MG, QD
  10. DOCETAXEL [Suspect]
     Active Substance: DOCETAXEL
     Indication: Breast cancer metastatic
     Dosage: 183 MG, EVERY 17 DAYS
  11. DOCETAXEL [Suspect]
     Active Substance: DOCETAXEL
     Dosage: 190 MG, Q3W
  12. DOCETAXEL [Suspect]
     Active Substance: DOCETAXEL
     Dosage: 180 MG, Q3W
  13. DOCETAXEL [Suspect]
     Active Substance: DOCETAXEL
     Dosage: 134.25 MG, Q3W
  14. DOCETAXEL [Suspect]
     Active Substance: DOCETAXEL
     Dosage: 175 MG, EVERY 17 DAYS
  15. DOCETAXEL [Suspect]
     Active Substance: DOCETAXEL
     Dosage: 540 MILLIGRAM, Q3W
  16. DOCETAXEL [Suspect]
     Active Substance: DOCETAXEL
     Dosage: 402.75 MILLIGRAM, Q3W
  17. DOXORUBICIN [Suspect]
     Active Substance: DOXORUBICIN
     Indication: Breast cancer metastatic
     Dosage: 104.400MG QD
     Dates: start: 20210608, end: 20210608
  18. TRASTUZUMAB [Suspect]
     Active Substance: TRASTUZUMAB
     Indication: Breast cancer metastatic
     Dosage: 468 MG, QD
     Dates: start: 20170720, end: 20170720
  19. TRASTUZUMAB [Suspect]
     Active Substance: TRASTUZUMAB
     Dosage: 560 MG, Q3W
     Dates: start: 20201230, end: 20210210
  20. TRASTUZUMAB [Suspect]
     Active Substance: TRASTUZUMAB
     Dosage: 540 MG, Q3W
     Dates: start: 20200422, end: 20200615
  21. TRASTUZUMAB [Suspect]
     Active Substance: TRASTUZUMAB
     Dosage: 624 MG, QD
     Dates: start: 20170224, end: 20170224
  22. TRASTUZUMAB [Suspect]
     Active Substance: TRASTUZUMAB
     Dosage: 462 MG, Q3W
  23. TRASTUZUMAB [Suspect]
     Active Substance: TRASTUZUMAB
     Dosage: 432 MG, QD
  24. TRASTUZUMAB [Suspect]
     Active Substance: TRASTUZUMAB
     Dosage: 414 MG, Q3W
  25. TRASTUZUMAB [Suspect]
     Active Substance: TRASTUZUMAB
     Dosage: 408 MG, Q3W
  26. TRASTUZUMAB [Suspect]
     Active Substance: TRASTUZUMAB
     Dosage: 390 MG; Q17D
  27. TUCATINIB [Suspect]
     Active Substance: TUCATINIB
     Indication: Breast cancer metastatic
     Dosage: 300 MG, BID
     Dates: start: 20201230, end: 20210210
  28. TUCATINIB [Suspect]
     Active Substance: TUCATINIB
     Indication: Breast cancer metastatic
     Dosage: 300 MG, BID
  29. TUCATINIB [Suspect]
     Active Substance: TUCATINIB
     Dosage: 300 MG, BID
     Route: 065
  30. KADCYLA [Suspect]
     Active Substance: ADO-TRASTUZUMAB EMTANSINE
     Indication: Breast cancer metastatic
     Dosage: 270 MG, Q3W
     Dates: start: 20190306, end: 20190909
  31. KADCYLA [Suspect]
     Active Substance: ADO-TRASTUZUMAB EMTANSINE
     Indication: Breast cancer metastatic
     Dosage: 270 MG, Q3W, START DATE: 06-MAR-2019, STOP DATE: 09-SEP-2019
  32. KADCYLA [Suspect]
     Active Substance: ADO-TRASTUZUMAB EMTANSINE
     Dosage: 270 MG, Q3W, START DATE: 06-MAR-2019, STOP DATE: 09-SEP-2019
     Route: 065
  33. PEGFILGRASTIM [Suspect]
     Active Substance: PEGFILGRASTIM
     Indication: Product used for unknown indication
     Dosage: UNK
     Route: 065
  34. PERJETA [Suspect]
     Active Substance: PERTUZUMAB
     Indication: Breast cancer metastatic
     Dosage: 840 MG, QD
     Dates: start: 20210317, end: 20210428
  35. PERJETA [Suspect]
     Active Substance: PERTUZUMAB
     Dosage: 840 MG, QD
     Dates: start: 20200422, end: 20200615
  36. PERJETA [Suspect]
     Active Substance: PERTUZUMAB
     Dosage: 840 MG, QD
     Dates: start: 20170224
  37. PERJETA [Suspect]
     Active Substance: PERTUZUMAB
     Dosage: 840 MG, QD
  38. PERJETA [Suspect]
     Active Substance: PERTUZUMAB
     Dosage: 840 MG, QD
  39. PERJETA [Suspect]
     Active Substance: PERTUZUMAB
     Dosage: 840 MG, QD
  40. PERJETA [Suspect]
     Active Substance: PERTUZUMAB
     Dosage: 840 MG, QD
     Route: 065
  41. TYKERB [Suspect]
     Active Substance: LAPATINIB DITOSYLATE
     Indication: Breast cancer metastatic
     Dosage: 1000 MG, QD
     Dates: start: 20200108, end: 20200421
  42. TYKERB [Suspect]
     Active Substance: LAPATINIB DITOSYLATE
     Indication: Product used for unknown indication
     Dosage: 1250 MG, QD
     Dates: start: 20191002, end: 20200107
  43. TYKERB [Suspect]
     Active Substance: LAPATINIB DITOSYLATE
     Dosage: 1000 MG, QD
  44. TYKERB [Suspect]
     Active Substance: LAPATINIB DITOSYLATE
     Dosage: 1250 MG, QD
  45. TYKERB [Suspect]
     Active Substance: LAPATINIB DITOSYLATE
     Dosage: 1000 MG, QD
     Route: 065
  46. TYKERB [Suspect]
     Active Substance: LAPATINIB DITOSYLATE
     Dosage: 1250 MG, QD
     Route: 065
  47. BLEOMYCIN SULFATE [Suspect]
     Active Substance: BLEOMYCIN SULFATE
     Indication: Breast cancer metastatic
     Dosage: 26.850MG QD
     Dates: start: 20200519, end: 20200519
  48. BLEOMYCIN SULFATE [Suspect]
     Active Substance: BLEOMYCIN SULFATE
     Indication: HER2 positive breast cancer
     Dosage: 26.850MG QD
     Dates: start: 20210105, end: 20210105
  49. BLEOMYCIN SULFATE [Suspect]
     Active Substance: BLEOMYCIN SULFATE
     Dosage: 1 DF, QD
  50. BLEOMYCIN SULFATE [Suspect]
     Active Substance: BLEOMYCIN SULFATE
     Dosage: 26.850MG QD
  51. BLEOMYCIN SULFATE [Suspect]
     Active Substance: BLEOMYCIN SULFATE
     Dosage: 26.850MG QD
  52. BLEOMYCIN SULFATE [Suspect]
     Active Substance: BLEOMYCIN SULFATE
     Dosage: 26.850MG QD
  53. DENOSUMAB [Suspect]
     Active Substance: DENOSUMAB
     Indication: Breast cancer metastatic
     Dosage: 120 MG, Q4W
     Dates: start: 20201230, end: 20210210
  54. DENOSUMAB [Suspect]
     Active Substance: DENOSUMAB
     Dosage: 120 MG, Q4W
  55. DENOSUMAB [Suspect]
     Active Substance: DENOSUMAB
     Dosage: 120 MG, Q4W
     Route: 065
  56. NAVELBINE [Suspect]
     Active Substance: VINORELBINE TARTRATE
     Indication: Breast cancer metastatic
     Dosage: 45 MG, Q3W
     Dates: start: 20200422, end: 20200722
  57. NAVELBINE [Suspect]
     Active Substance: VINORELBINE TARTRATE
     Dosage: 45 MG, Q3W, DRUG START DATE WAS 22-APR-2020 AND STOPPED DATE WAS 22-JUL-2020
  58. NAVELBINE [Suspect]
     Active Substance: VINORELBINE TARTRATE
     Dosage: 45 MG, Q3W
  59. LAPATINIB [Suspect]
     Active Substance: LAPATINIB
     Indication: Breast cancer metastatic
     Dosage: 1250 MG, QD
     Dates: start: 20191002, end: 20200107
  60. LAPATINIB [Suspect]
     Active Substance: LAPATINIB
     Dosage: 1250 MG, QD
  61. LAPATINIB [Suspect]
     Active Substance: LAPATINIB
     Dosage: 1250 MG, QD
     Route: 065
  62. VINORELBINE TARTRATE [Suspect]
     Active Substance: VINORELBINE TARTRATE
     Indication: Breast cancer metastatic
     Dosage: 45 MG
     Route: 065
  63. TUCATINIB [Suspect]
     Active Substance: TUCATINIB
     Indication: Breast cancer metastatic
     Dosage: 300 MG, BID
     Dates: start: 20201230, end: 20210210
  64. VINORELBINE TARTRATE [Suspect]
     Active Substance: VINORELBINE TARTRATE
     Indication: Breast cancer metastatic
     Dosage: 45 MG, Q3W
     Dates: start: 20200422, end: 20200722
  65. VINORELBINE TARTRATE [Suspect]
     Active Substance: VINORELBINE TARTRATE
     Dosage: 45 MG, Q3W
  66. POLYETHYLENE GLYCOL 3350\POTASSIUM CHLORIDE\SODIUM BICARBONATE\SODIUM [Concomitant]
     Active Substance: POLYETHYLENE GLYCOL 3350\POTASSIUM CHLORIDE\SODIUM BICARBONATE\SODIUM CHLORIDE
     Dosage: UNK
     Route: 065
     Dates: start: 20210608, end: 20210616
  67. POLYETHYLENE GLYCOL 3350\POTASSIUM CHLORIDE\SODIUM BICARBONATE\SODIUM [Concomitant]
     Active Substance: POLYETHYLENE GLYCOL 3350\POTASSIUM CHLORIDE\SODIUM BICARBONATE\SODIUM CHLORIDE
     Indication: Product used for unknown indication
     Dosage: UNK
     Dates: start: 20170709, end: 20170709
  68. POLYETHYLENE GLYCOL 3350\POTASSIUM CHLORIDE\SODIUM BICARBONATE\SODIUM [Concomitant]
     Active Substance: POLYETHYLENE GLYCOL 3350\POTASSIUM CHLORIDE\SODIUM BICARBONATE\SODIUM CHLORIDE
     Indication: Product used for unknown indication
     Dosage: UNK
     Route: 065
     Dates: start: 20210608, end: 20210616
  69. MORPHINE [Concomitant]
     Active Substance: MORPHINE
     Dosage: UNK
     Route: 065
     Dates: start: 20210521, end: 20210623
  70. MORPHINE [Concomitant]
     Active Substance: MORPHINE
     Indication: Dyspnoea
     Dosage: UNK
     Route: 065
  71. MORPHINE [Concomitant]
     Active Substance: MORPHINE
     Indication: Product used for unknown indication
     Dosage: UNK
     Route: 065
  72. Scottopect [Concomitant]
     Dosage: UNK
     Route: 065
     Dates: start: 20210611, end: 20210613
  73. Scottopect [Concomitant]
     Indication: Product used for unknown indication
     Dosage: UNK
     Route: 065
     Dates: start: 20210611, end: 20210613
  74. Scottopect [Concomitant]
     Indication: Cough
  75. ALPRAZOLAM [Concomitant]
     Active Substance: ALPRAZOLAM
     Dosage: UNK
     Route: 065
     Dates: start: 20210613, end: 20210615
  76. ALPRAZOLAM [Concomitant]
     Active Substance: ALPRAZOLAM
     Indication: Product used for unknown indication
     Dosage: UNK
     Route: 065
     Dates: start: 20210613, end: 20210615
  77. ALPRAZOLAM [Concomitant]
     Active Substance: ALPRAZOLAM
     Indication: Restlessness
  78. VITAMIN C [Concomitant]
     Active Substance: ASCORBIC ACID
     Dosage: UNK
     Route: 065
     Dates: start: 20210611, end: 20210614
  79. VITAMIN C [Concomitant]
     Active Substance: ASCORBIC ACID
     Indication: Product used for unknown indication
     Dosage: UNK
     Route: 065
     Dates: start: 20210611, end: 20210614
  80. VITAMIN C [Concomitant]
     Active Substance: ASCORBIC ACID
     Indication: Gastrointestinal disorder
  81. Paspertin [Concomitant]
     Dosage: UNK
     Route: 065
     Dates: start: 20210608, end: 20210623
  82. Paspertin [Concomitant]
     Indication: Product used for unknown indication
     Dosage: UNK
     Route: 065
     Dates: start: 20210608, end: 20210610
  83. Paspertin [Concomitant]
     Indication: Gastrointestinal disorder
     Dosage: UNK
     Route: 065
     Dates: start: 20210608, end: 20210623
  84. Paspertin [Concomitant]
     Dosage: UNK
     Route: 065
     Dates: start: 20210611, end: 20210623
  85. Paspertin [Concomitant]
     Dosage: UNK
     Route: 065
     Dates: start: 20210608, end: 20210623
  86. HYDROMORPHONE HYDROCHLORIDE [Concomitant]
     Active Substance: HYDROMORPHONE HYDROCHLORIDE
     Dosage: UNK
     Route: 065
     Dates: start: 20210611, end: 20210615
  87. HYDROMORPHONE HYDROCHLORIDE [Concomitant]
     Active Substance: HYDROMORPHONE HYDROCHLORIDE
     Indication: Product used for unknown indication
     Dosage: UNK
     Route: 065
     Dates: start: 20210611, end: 20210615
  88. Neriforte [Concomitant]
     Dosage: UNK
     Route: 065
  89. Neriforte [Concomitant]
     Indication: Skin fissures
     Dosage: 1 DOSAGE FORM, AS NEEDED
     Dates: start: 20200430, end: 20200515
  90. Neriforte [Concomitant]
     Indication: Product used for unknown indication
  91. Cal c vita [Concomitant]
     Dosage: UNK
     Route: 065
     Dates: start: 20170203, end: 20210612
  92. Cal c vita [Concomitant]
     Indication: Product used for unknown indication
     Dosage: UNK
     Route: 065
  93. Cal c vita [Concomitant]
     Dosage: UNK
     Route: 065
     Dates: start: 20170203, end: 20210612
  94. Cal c vita [Concomitant]
     Dosage: UNK
     Route: 065
     Dates: start: 20170203, end: 20210612
  95. ZOFRAN [Concomitant]
     Active Substance: ONDANSETRON HYDROCHLORIDE
     Dosage: UNK
     Route: 065
     Dates: start: 20210611, end: 20210616
  96. ZOFRAN [Concomitant]
     Active Substance: ONDANSETRON HYDROCHLORIDE
     Indication: Product used for unknown indication
     Dosage: UNK
     Route: 065
  97. ZOFRAN [Concomitant]
     Active Substance: ONDANSETRON HYDROCHLORIDE
     Indication: Gastrointestinal disorder
     Dosage: UNK
     Route: 065
     Dates: start: 20210611, end: 20210612
  98. ZOFRAN [Concomitant]
     Active Substance: ONDANSETRON HYDROCHLORIDE
     Dosage: ONGOING = NOT CHECKED
     Route: 065
     Dates: start: 20210612, end: 20210616
  99. DROPERIDOL [Concomitant]
     Active Substance: DROPERIDOL
     Dosage: UNK
     Route: 065
     Dates: start: 20210612, end: 20210617
  100. DROPERIDOL [Concomitant]
     Active Substance: DROPERIDOL
     Indication: Product used for unknown indication
     Dosage: UNK
     Route: 065
     Dates: start: 20210612, end: 20210617
  101. DROPERIDOL [Concomitant]
     Active Substance: DROPERIDOL
     Indication: Gastrointestinal disorder
  102. Halset [Concomitant]
     Dosage: UNK
     Route: 065
     Dates: start: 20210611, end: 20210615
  103. Halset [Concomitant]
     Indication: Product used for unknown indication
     Dosage: UNK
     Route: 065
     Dates: start: 20210611, end: 20210615
  104. Halset [Concomitant]
     Indication: Cough
     Dosage: UNK
     Route: 065
     Dates: start: 20210611, end: 20210615
  105. Halset [Concomitant]
     Dosage: UNK
     Route: 065
     Dates: start: 20210611, end: 20210615
  106. Halset [Concomitant]
     Dosage: UNK
     Route: 065
     Dates: start: 20210611, end: 20210615
  107. KCL [Concomitant]
     Active Substance: POTASSIUM CHLORIDE
     Indication: Product used for unknown indication
     Dosage: UNK
     Route: 065
     Dates: start: 20170429, end: 20200504
  108. EUTHYROX [Concomitant]
     Active Substance: LEVOTHYROXINE SODIUM
     Dosage: UNK
     Route: 065
     Dates: start: 20170303, end: 20210615
  109. EUTHYROX [Concomitant]
     Active Substance: LEVOTHYROXINE SODIUM
     Indication: Product used for unknown indication
     Dosage: UNK
     Route: 065
     Dates: start: 20170303, end: 20210615
  110. EUTHYROX [Concomitant]
     Active Substance: LEVOTHYROXINE SODIUM
     Dosage: UNK
     Route: 065
     Dates: start: 20170303, end: 20210615
  111. ONDANSETRON [Concomitant]
     Active Substance: ONDANSETRON
     Dosage: UNK
     Route: 065
     Dates: start: 20210608, end: 20210610
  112. ONDANSETRON [Concomitant]
     Active Substance: ONDANSETRON
     Indication: Product used for unknown indication
     Dosage: UNK
     Route: 065
     Dates: start: 20210611, end: 20210616
  113. ONDANSETRON [Concomitant]
     Active Substance: ONDANSETRON
     Indication: Gastrointestinal disorder
     Dosage: UNK
     Route: 065
     Dates: start: 20210611, end: 20210616
  114. ONDANSETRON [Concomitant]
     Active Substance: ONDANSETRON
     Dosage: UNK
     Route: 065
     Dates: start: 20210611, end: 20210616
  115. ONDANSETRON [Concomitant]
     Active Substance: ONDANSETRON
     Dosage: UNK
     Route: 065
     Dates: start: 20210608, end: 20210610
  116. Temesta [Concomitant]
     Dosage: UNK
     Route: 065
     Dates: start: 20210611, end: 20210621
  117. Temesta [Concomitant]
     Indication: Product used for unknown indication
     Dosage: UNK
     Route: 065
     Dates: start: 20210611, end: 20210621
  118. Temesta [Concomitant]
     Indication: Restlessness
     Dosage: UNK
     Route: 065
     Dates: start: 20210618, end: 20210623
  119. FENTANYL [Concomitant]
     Active Substance: FENTANYL
     Dosage: UNK
     Route: 065
  120. FENTANYL [Concomitant]
     Active Substance: FENTANYL
     Indication: Product used for unknown indication
     Dosage: UNK
     Route: 065
  121. FENTANYL [Concomitant]
     Active Substance: FENTANYL
     Dosage: UNK
     Route: 065
  122. FENTANYL [Concomitant]
     Active Substance: FENTANYL
     Dosage: UNK
     Route: 065
  123. ACETAMINOPHEN [Concomitant]
     Active Substance: ACETAMINOPHEN
     Dosage: UNK
     Route: 065
     Dates: start: 20210622, end: 20210622
  124. ACETAMINOPHEN [Concomitant]
     Active Substance: ACETAMINOPHEN
     Indication: Pseudomonal sepsis
     Dosage: UNK
     Route: 065
     Dates: end: 20210622
  125. ACETAMINOPHEN [Concomitant]
     Active Substance: ACETAMINOPHEN
     Indication: Product used for unknown indication
     Dosage: UNK
     Route: 065
     Dates: start: 20200506, end: 20210622
  126. ACETAMINOPHEN [Concomitant]
     Active Substance: ACETAMINOPHEN
     Dosage: UNK
     Route: 065
     Dates: start: 20200506, end: 20210622
  127. ACETAMINOPHEN [Concomitant]
     Active Substance: ACETAMINOPHEN
     Dosage: UNK
     Route: 065
     Dates: start: 20200506, end: 20210622
  128. ACETAMINOPHEN [Concomitant]
     Active Substance: ACETAMINOPHEN
     Dosage: UNK
     Route: 065
     Dates: start: 20200506, end: 20210622
  129. ACETAMINOPHEN [Concomitant]
     Active Substance: ACETAMINOPHEN
     Dosage: UNK
     Route: 065
     Dates: start: 20210622
  130. ACETAMINOPHEN [Concomitant]
     Active Substance: ACETAMINOPHEN
     Dosage: UNK
     Route: 065
     Dates: start: 20210622, end: 20210622
  131. BUTYLSCOPOLAMINE BROMIDE [Concomitant]
     Active Substance: BUTYLSCOPOLAMINE BROMIDE
     Dosage: UNK
     Route: 065
     Dates: start: 20210618, end: 20210618
  132. BUTYLSCOPOLAMINE BROMIDE [Concomitant]
     Active Substance: BUTYLSCOPOLAMINE BROMIDE
     Indication: Product used for unknown indication
  133. Oleovit [Concomitant]
     Dosage: UNK
     Route: 065
     Dates: start: 20170329, end: 20210615
  134. Oleovit [Concomitant]
     Indication: Product used for unknown indication
     Dosage: 30 DROP, ONCE EVERY 1 WK,1/12 MILLILITRE
  135. Oleovit [Concomitant]
     Dosage: 30 DROP, ONCE EVERY 1 WK,1/12 MILLILITRE
  136. Oleovit [Concomitant]
     Dosage: 30 DROP, ONCE EVERY 1 WK,1/12 MILLILITRE
  137. Oleovit [Concomitant]
     Dosage: 30 DROP, ONCE EVERY 1 WK,1/12 MILLILITRE
  138. Oleovit [Concomitant]
     Dosage: 30 DROP, ONCE EVERY 1 WK,1/12 MILLILITRE
  139. Paracodin [Concomitant]
     Dosage: UNK
     Route: 065
     Dates: start: 20210428, end: 20210615
  140. Paracodin [Concomitant]
     Indication: Product used for unknown indication
  141. PANTOPRAZOLE [Concomitant]
     Active Substance: PANTOPRAZOLE
     Dosage: UNK
     Route: 065
     Dates: start: 20210317, end: 20210623
  142. PANTOPRAZOLE [Concomitant]
     Active Substance: PANTOPRAZOLE
     Indication: Product used for unknown indication
     Dosage: UNK
     Route: 065
     Dates: start: 20210317, end: 20210623
  143. PANTOPRAZOLE [Concomitant]
     Active Substance: PANTOPRAZOLE
     Indication: Gastrointestinal disorder
     Dosage: UNK
     Route: 065
     Dates: start: 20170722, end: 20180327
  144. PANTOPRAZOLE [Concomitant]
     Active Substance: PANTOPRAZOLE
     Dosage: UNK
     Route: 065
     Dates: start: 20170722, end: 20180327
  145. PANTOPRAZOLE [Concomitant]
     Active Substance: PANTOPRAZOLE
     Dosage: UNK
     Route: 065
     Dates: start: 20200506, end: 20200519
  146. PANTOPRAZOLE [Concomitant]
     Active Substance: PANTOPRAZOLE
     Dosage: UNK
     Route: 065
     Dates: start: 20210317, end: 20210623
  147. PANTOPRAZOLE [Concomitant]
     Active Substance: PANTOPRAZOLE
     Dosage: UNK
     Route: 065
     Dates: start: 20200506, end: 20200519
  148. Leukichtan [Concomitant]
     Dosage: UNK
     Route: 065
     Dates: start: 20200430, end: 20200515
  149. Leukichtan [Concomitant]
     Indication: Product used for unknown indication
     Dosage: UNK
     Route: 065
     Dates: start: 20200430, end: 20200515
  150. DRONABINOL [Concomitant]
     Active Substance: DRONABINOL
     Dosage: UNK
     Route: 065
     Dates: start: 20210608, end: 20210612
  151. DRONABINOL [Concomitant]
     Active Substance: DRONABINOL
     Indication: Product used for unknown indication
     Dosage: UNK
     Route: 065
     Dates: start: 20210608, end: 20210612
  152. DRONABINOL [Concomitant]
     Active Substance: DRONABINOL
     Dosage: UNK
     Route: 065
     Dates: start: 20210608, end: 20210612
  153. DRONABINOL [Concomitant]
     Active Substance: DRONABINOL
     Dosage: ONGOING = NOT CHECKED
     Route: 065
     Dates: start: 20210608, end: 20210612
  154. DRONABINOL [Concomitant]
     Active Substance: DRONABINOL
     Dosage: UNK
     Route: 065
     Dates: start: 20210608, end: 20210612
  155. DRONABINOL [Concomitant]
     Active Substance: DRONABINOL
     Dosage: ONGOING = NOT CHECKED
     Route: 065
     Dates: start: 20210608, end: 20210612
  156. DRONABINOL [Concomitant]
     Active Substance: DRONABINOL
     Dosage: UNK
     Route: 065
     Dates: start: 20210608, end: 20210612
  157. EDOXABAN TOSYLATE [Concomitant]
     Active Substance: EDOXABAN TOSYLATE
     Dosage: UNK
     Route: 065
     Dates: start: 20200613, end: 20210611
  158. EDOXABAN TOSYLATE [Concomitant]
     Active Substance: EDOXABAN TOSYLATE
     Indication: Product used for unknown indication
     Dosage: UNK
     Route: 065
  159. EDOXABAN TOSYLATE [Concomitant]
     Active Substance: EDOXABAN TOSYLATE
     Dosage: UNK
     Route: 065
     Dates: start: 20191120, end: 20200608
  160. Novalgin [Concomitant]
     Indication: Product used for unknown indication
     Dosage: UNK
     Route: 065
     Dates: start: 20210608, end: 20210618
  161. Novalgin [Concomitant]
     Dosage: ONGOING = NOT CHECKED
     Dates: start: 20210608, end: 20210612
  162. Novalgin [Concomitant]
     Dosage: UNK
     Route: 065
     Dates: start: 20210618, end: 20210618
  163. XGEVA [Concomitant]
     Active Substance: DENOSUMAB
     Indication: Product used for unknown indication
     Dosage: UNK
     Route: 065
  164. XGEVA [Concomitant]
     Active Substance: DENOSUMAB
     Indication: Breast cancer metastatic
     Dosage: UNK
     Route: 065
  165. XGEVA [Concomitant]
     Active Substance: DENOSUMAB
     Dosage: UNK
     Route: 065
  166. XGEVA [Concomitant]
     Active Substance: DENOSUMAB
     Dosage: UNK
     Route: 065
  167. XGEVA [Concomitant]
     Active Substance: DENOSUMAB
     Dosage: UNK
     Route: 065
  168. LORAZEPAM [Concomitant]
     Active Substance: LORAZEPAM
     Indication: Product used for unknown indication
     Dosage: UNK
     Route: 065
  169. LORAZEPAM [Concomitant]
     Active Substance: LORAZEPAM
     Indication: Restlessness
     Dosage: UNK
     Route: 065
     Dates: start: 20210618, end: 20210623
  170. LORAZEPAM [Concomitant]
     Active Substance: LORAZEPAM
     Dosage: UNK
     Route: 065
     Dates: start: 20210618, end: 20210623
  171. LORAZEPAM [Concomitant]
     Active Substance: LORAZEPAM
     Dosage: ONGOING = NOT CHECKED
     Route: 065
     Dates: start: 20210618, end: 20210623
  172. LORAZEPAM [Concomitant]
     Active Substance: LORAZEPAM
     Dosage: ONGOING = NOT CHECKED
     Route: 065
     Dates: start: 20210618, end: 20210623
  173. LORAZEPAM [Concomitant]
     Active Substance: LORAZEPAM
     Dosage: UNK
     Route: 065
  174. LORAZEPAM [Concomitant]
     Active Substance: LORAZEPAM
     Dosage: UNK
     Route: 065
  175. LORAZEPAM [Concomitant]
     Active Substance: LORAZEPAM
     Dosage: UNK
     Route: 065
  176. PREGABALIN [Concomitant]
     Active Substance: PREGABALIN
     Indication: Product used for unknown indication
     Dosage: UNK
     Route: 065
  177. PREGABALIN [Concomitant]
     Active Substance: PREGABALIN
     Dosage: UNK
     Route: 065
  178. PREGABALIN [Concomitant]
     Active Substance: PREGABALIN
     Dosage: UNK
     Route: 065
  179. ZIEXTENZO [Concomitant]
     Active Substance: PEGFILGRASTIM-BMEZ
     Indication: Product used for unknown indication
     Dosage: UNK
     Route: 065
  180. ZIEXTENZO [Concomitant]
     Active Substance: PEGFILGRASTIM-BMEZ
     Route: 065
  181. ZIEXTENZO [Concomitant]
     Active Substance: PEGFILGRASTIM-BMEZ
     Dosage: UNK
     Route: 065
  182. LACTULOSE [Concomitant]
     Active Substance: LACTULOSE
     Indication: Product used for unknown indication
     Dosage: UNK
     Route: 065
  183. LACTULOSE [Concomitant]
     Active Substance: LACTULOSE
     Dosage: UNK
     Route: 065
  184. LACTULOSE [Concomitant]
     Active Substance: LACTULOSE
     Dosage: UNK
     Route: 065
  185. Diproderm [Concomitant]
     Indication: Product used for unknown indication
     Dosage: UNK
  186. Diproderm [Concomitant]
     Dosage: UNK
  187. Diproderm [Concomitant]
     Dosage: UNK
  188. Ponveridol [Concomitant]
     Indication: Product used for unknown indication
     Dosage: UNK
     Route: 065
  189. Ponveridol [Concomitant]
     Indication: Gastrointestinal disorder
     Dosage: UNK
     Route: 065
     Dates: start: 20210612, end: 20210617
  190. Ponveridol [Concomitant]
     Indication: Restlessness
     Dosage: UNK
     Route: 065
     Dates: start: 20210612, end: 20210617
  191. CARBOXYMETHYLCELLULOSE SODIUM [Concomitant]
     Active Substance: CARBOXYMETHYLCELLULOSE SODIUM
     Indication: Product used for unknown indication
     Dosage: UNK
     Route: 065
  192. CARBOXYMETHYLCELLULOSE SODIUM [Concomitant]
     Active Substance: CARBOXYMETHYLCELLULOSE SODIUM
     Dosage: UNK
     Route: 065
  193. LOVENOX [Concomitant]
     Active Substance: ENOXAPARIN SODIUM
     Dosage: UNK
     Route: 065
     Dates: start: 20170224, end: 20171130
  194. LOVENOX [Concomitant]
     Active Substance: ENOXAPARIN SODIUM
     Indication: Product used for unknown indication
  195. LEVOFLOXACIN [Concomitant]
     Active Substance: LEVOFLOXACIN
     Indication: Product used for unknown indication
     Dosage: UNK
     Route: 065
     Dates: start: 20200506, end: 20200512
  196. LEVOFLOXACIN [Concomitant]
     Active Substance: LEVOFLOXACIN
     Indication: Product used for unknown indication
  197. MORPHINE SULFATE [Concomitant]
     Active Substance: MORPHINE SULFATE
     Indication: Product used for unknown indication
     Dosage: UNK
  198. MORPHINE SULFATE [Concomitant]
     Active Substance: MORPHINE SULFATE
     Dosage: UNK
     Route: 065
  199. MORPHINE SULFATE [Concomitant]
     Active Substance: MORPHINE SULFATE
     Dosage: ONGOING = NOT CHECKED
     Route: 065
     Dates: start: 20210521, end: 20210616
  200. MORPHINE SULFATE [Concomitant]
     Active Substance: MORPHINE SULFATE
     Dosage: ONGOING = NOT CHECKED
     Route: 065
     Dates: start: 20210521, end: 20210616
  201. MORPHINE SULFATE [Concomitant]
     Active Substance: MORPHINE SULFATE
     Dosage: ONGOING = NOT CHECKED
     Route: 065
     Dates: start: 20210521, end: 20210616
  202. MORPHINE SULFATE [Concomitant]
     Active Substance: MORPHINE SULFATE
     Dosage: ONGOING = NOT CHECKED
     Route: 065
     Dates: start: 20210521, end: 20210616
  203. MORPHINE SULFATE [Concomitant]
     Active Substance: MORPHINE SULFATE
     Dosage: ONGOING = NOT CHECKED
     Route: 065
     Dates: start: 20210521, end: 20210616
  204. MORPHINE SULFATE [Concomitant]
     Active Substance: MORPHINE SULFATE
     Dosage: ONGOING = NOT CHECKED
     Route: 065
     Dates: start: 20210616, end: 20210623
  205. MORPHINE SULFATE [Concomitant]
     Active Substance: MORPHINE SULFATE
     Dosage: ONGOING = NOT CHECKED
     Route: 065
     Dates: start: 20210616, end: 20210623
  206. MORPHINE SULFATE [Concomitant]
     Active Substance: MORPHINE SULFATE
     Dosage: ONGOING = NOT CHECKED
     Route: 065
     Dates: start: 20210616, end: 20210623
  207. MORPHINE SULFATE [Concomitant]
     Active Substance: MORPHINE SULFATE
     Dosage: ONGOING = NOT CHECKED
     Route: 065
     Dates: start: 20210616, end: 20210623
  208. MORPHINE SULFATE [Concomitant]
     Active Substance: MORPHINE SULFATE
     Dosage: ONGOING = NOT CHECKED
     Route: 065
     Dates: start: 20210616, end: 20210623
  209. MORPHINE SULFATE [Concomitant]
     Active Substance: MORPHINE SULFATE
     Dosage: UNK
     Route: 065
  210. Kalioral [Concomitant]
     Indication: Product used for unknown indication
     Dosage: UNK
     Route: 065
     Dates: start: 20200427, end: 20200428
  211. DEXAMETHASONE [Concomitant]
     Active Substance: DEXAMETHASONE
     Indication: Product used for unknown indication
     Dosage: UNK
     Route: 065
     Dates: start: 20170810, end: 20200505
  212. SILICON [Concomitant]
     Active Substance: SILICON
     Indication: Product used for unknown indication
     Dosage: UNK
     Route: 065
     Dates: start: 20200521, end: 20200602
  213. SILICON [Concomitant]
     Active Substance: SILICON
     Dosage: UNK
     Route: 065
     Dates: start: 20200430, end: 20200515
  214. SILICON [Concomitant]
     Active Substance: SILICON
     Route: 065
     Dates: start: 20200521, end: 20200602
  215. SILICON [Concomitant]
     Active Substance: SILICON
     Route: 065
     Dates: start: 20200521, end: 20200602
  216. SILICON [Concomitant]
     Active Substance: SILICON
     Route: 065
     Dates: start: 20200521, end: 20200602
  217. SILICON [Concomitant]
     Active Substance: SILICON
     Route: 065
     Dates: start: 20200521, end: 20200602
  218. BETAISODONA [Concomitant]
     Active Substance: POVIDONE-IODINE
     Indication: Product used for unknown indication
     Dosage: UNK
     Route: 065
     Dates: start: 20200430, end: 20200515
  219. BETAISODONA [Concomitant]
     Active Substance: POVIDONE-IODINE
     Indication: Skin fissures
     Dosage: ONGOING NOT CHECKED
     Route: 065
     Dates: start: 20200430, end: 20200515
  220. BETAISODONA [Concomitant]
     Active Substance: POVIDONE-IODINE
     Dosage: ONGOING NOT CHECKED
     Route: 065
     Dates: start: 20200430, end: 20200515
  221. BETAISODONA [Concomitant]
     Active Substance: POVIDONE-IODINE
     Dosage: ONGOING NOT CHECKED
     Route: 065
     Dates: start: 20200430, end: 20200515
  222. BETAISODONA [Concomitant]
     Active Substance: POVIDONE-IODINE
     Dosage: ONGOING NOT CHECKED
     Route: 065
     Dates: start: 20200430, end: 20200515
  223. BETAISODONA [Concomitant]
     Active Substance: POVIDONE-IODINE
     Dosage: ONGOING NOT CHECKED
     Route: 065
     Dates: start: 20200430, end: 20200515
  224. CALCIUM CARBONATE\CHOLECALCIFEROL [Concomitant]
     Active Substance: CALCIUM CARBONATE\CHOLECALCIFEROL
     Indication: Product used for unknown indication
     Dosage: UNK
     Route: 065
  225. Aceclofenac and paracetamol [Concomitant]
     Indication: Product used for unknown indication
     Dosage: UNK
     Route: 065
     Dates: start: 20210622, end: 20210622
  226. Aceclofenac and paracetamol [Concomitant]
     Dosage: ONGOING = NOT CHECKED
     Route: 065
     Dates: start: 20210622, end: 20210622
  227. Aceclofenac and paracetamol [Concomitant]
     Dosage: ONGOING = NOT CHECKED
     Route: 065
     Dates: start: 20210622, end: 20210622
  228. Aceclofenac and paracetamol [Concomitant]
     Dosage: ONGOING = NOT CHECKED
     Route: 065
     Dates: start: 20210622, end: 20210622
  229. Aceclofenac and paracetamol [Concomitant]
     Dosage: ONGOING = NOT CHECKED
     Route: 065
     Dates: start: 20210622, end: 20210622
  230. Aceclofenac and paracetamol [Concomitant]
     Dosage: ONGOING = NOT CHECKED
     Route: 065
     Dates: start: 20210622, end: 20210622
  231. EMEND [Concomitant]
     Active Substance: APREPITANT
     Indication: Product used for unknown indication
     Dosage: UNK
     Route: 065
     Dates: start: 20200428, end: 20200430
  232. TAZOBACTAM [Concomitant]
     Active Substance: TAZOBACTAM
     Indication: Product used for unknown indication
     Dosage: UNK
     Route: 065
     Dates: start: 20200423, end: 20200504
  233. MORPHINE [Concomitant]
     Active Substance: MORPHINE
     Indication: Dyspnoea
     Dosage: UNK
     Route: 065
     Dates: start: 20210616, end: 20210623
  234. MORPHINE [Concomitant]
     Active Substance: MORPHINE
     Dosage: UNK
     Route: 065
     Dates: start: 20210521, end: 20210616

REACTIONS (23)
  - Pseudomonal sepsis [Recovered/Resolved]
  - Streptococcal sepsis [Recovered/Resolved]
  - Metastases to central nervous system [Not Recovered/Not Resolved]
  - Vascular device infection [Recovered/Resolved]
  - Brain oedema [Not Recovered/Not Resolved]
  - Metastases to lymph nodes [Not Recovered/Not Resolved]
  - Vascular device infection [Recovered/Resolved]
  - C-reactive protein increased [Not Recovered/Not Resolved]
  - Sepsis [Recovered/Resolved]
  - Candida infection [Not Recovered/Not Resolved]
  - Back pain [Recovered/Resolved]
  - Vomiting [Recovered/Resolved]
  - Nausea [Recovered/Resolved]
  - Fatigue [Not Recovered/Not Resolved]
  - Skin fissures [Recovered/Resolved]
  - Varicose vein [Not Recovered/Not Resolved]
  - Nail bed inflammation [Not Recovered/Not Resolved]
  - Eczema [Not Recovered/Not Resolved]
  - Paronychia [Recovered/Resolved]
  - Pleural effusion [Recovered/Resolved]
  - Nasal mucosal disorder [Recovered/Resolved]
  - Off label use [Unknown]
  - Restlessness [Unknown]

NARRATIVE: CASE EVENT DATE: 20170921
